FAERS Safety Report 25665601 (Version 2)
Quarter: 2025Q3

REPORT INFORMATION
  Report Type: Spontaneous
  Country: EU (occurrence: EU)
  Receive Date: 20250811
  Receipt Date: 20250818
  Transmission Date: 20251020
  Serious: Yes (Life-Threatening, Hospitalization)
  Sender: FRESENIUS KABI
  Company Number: None

PATIENT
  Age: 16 Year
  Sex: Female
  Weight: 67.8 kg

DRUGS (4)
  1. TOCILIZUMAB [Suspect]
     Active Substance: TOCILIZUMAB
     Indication: Juvenile idiopathic arthritis
     Dosage: 600 MG 1X EVERY 4 WEEKS?FOA: CONCENTRATE FOR SOLUTION FOR INFUSION
     Dates: start: 20250630, end: 20250728
  2. METHOTREXATE TABLET 10MG / Brand name not specified [Concomitant]
     Indication: Product used for unknown indication
     Route: 048
  3. Folic acid TABLET 5MG / Brand name not specified [Concomitant]
     Indication: Product used for unknown indication
     Route: 048
  4. DICLOFENAC/MISOPROSTOL TABLET gastric-resistant 75MG/200UG / ARTHROTEC [Concomitant]
     Indication: Product used for unknown indication
     Route: 048

REACTIONS (6)
  - Anaphylactic reaction [Recovered/Resolved]
  - Urticaria [Recovered/Resolved]
  - Oedema [Recovered/Resolved]
  - Hypotension [Recovered/Resolved]
  - Malaise [Recovered/Resolved]
  - Dyspnoea [Recovered/Resolved]
